FAERS Safety Report 6896870-8 (Version None)
Quarter: 2010Q3

REPORT INFORMATION
  Report Type: 
  Country: None (occurrence: None)
  Receive Date: 20100802
  Receipt Date: 20070227
  Transmission Date: 20110219
  Serious: No
  Sender: FDA-Public Use
  Company Number: US-PFIZER INC-2007016099

PATIENT
  Sex: Male
  Weight: 89.8 kg

DRUGS (4)
  1. LYRICA [Suspect]
     Indication: PAIN IN EXTREMITY
     Dates: start: 20070220
  2. LYRICA [Suspect]
  3. LIPITOR [Concomitant]
  4. FLOMAX [Concomitant]

REACTIONS (1)
  - PAIN [None]
